FAERS Safety Report 6919454-1 (Version None)
Quarter: 2010Q3

REPORT INFORMATION
  Report Type: 
  Country: None (occurrence: None)
  Receive Date: 20100811
  Receipt Date: 20100805
  Transmission Date: 20110219
  Serious: Yes (Hospitalization)
  Sender: FDA-Public Use
  Company Number: B0668618A

PATIENT
  Sex: Female

DRUGS (12)
  1. AUGMENTIN '125' [Suspect]
     Dosage: 1G THREE TIMES PER DAY
     Route: 042
     Dates: start: 20100326, end: 20100327
  2. AMOXICILLIN [Suspect]
     Dosage: 1G THREE TIMES PER DAY
     Route: 048
     Dates: start: 20100327, end: 20100331
  3. CEFPODOXIME PROXETIL [Suspect]
     Dosage: 200MG TWICE PER DAY
     Route: 048
     Dates: start: 20100318, end: 20100326
  4. COZAAR [Concomitant]
     Route: 065
  5. ESIDRIX [Concomitant]
     Dosage: 2TAB TWICE PER DAY
     Route: 065
  6. PROTELOS [Concomitant]
     Route: 065
     Dates: start: 20091201, end: 20100327
  7. OROCAL [Concomitant]
     Route: 065
     Dates: end: 20100327
  8. GAVISCON [Concomitant]
     Route: 065
  9. FENOFIBRATE [Concomitant]
     Route: 065
  10. DIFFU K [Concomitant]
     Dosage: 2UNIT IN THE MORNING
     Route: 065
  11. PREDNISOLONE [Concomitant]
     Dosage: 60MG IN THE MORNING
     Route: 065
     Dates: start: 20100318
  12. NEXIUM [Concomitant]
     Route: 065

REACTIONS (12)
  - ABDOMINAL PAIN [None]
  - ASTHENIA [None]
  - CLOSTRIDIUM TEST POSITIVE [None]
  - COLITIS [None]
  - DIARRHOEA [None]
  - DYSSTASIA [None]
  - FUNGAL TEST POSITIVE [None]
  - GENERAL PHYSICAL HEALTH DETERIORATION [None]
  - MALAISE [None]
  - NAUSEA [None]
  - PSEUDOMEMBRANOUS COLITIS [None]
  - PYREXIA [None]
